FAERS Safety Report 18842307 (Version 3)
Quarter: 2021Q1

REPORT INFORMATION
  Report Type: Spontaneous
  Country: JP (occurrence: JP)
  Receive Date: 20210204
  Receipt Date: 20210320
  Transmission Date: 20210419
  Serious: Yes (Other)
  Sender: FDA-Public Use
  Company Number: JP-ACCORD-216679

PATIENT
  Age: 47 Year
  Sex: Female

DRUGS (3)
  1. CISPLATIN. [Suspect]
     Active Substance: CISPLATIN
     Indication: HEPATOCELLULAR CARCINOMA
     Dosage: 12 CYCLICAL, 5 DAYS OF ADMINISTRATION PER WEEK AND 2 DAYS OF WASHOUT,
     Route: 013
     Dates: start: 2019
  2. LENVATINIB [Concomitant]
     Active Substance: LENVATINIB
     Indication: HEPATOCELLULAR CARCINOMA
  3. FLUOROURACIL. [Suspect]
     Active Substance: FLUOROURACIL
     Indication: HEPATOCELLULAR CARCINOMA
     Dosage: 5 DAYS OF ADMINISTRATION PER WEEK AND 2 DAYS OF WASHOUT, ONE DOSE OF TREATMENT WAS 250 MG OF 5?FU
     Route: 013
     Dates: start: 2019

REACTIONS (1)
  - Duodenal ulcer [Recovered/Resolved]

NARRATIVE: CASE EVENT DATE: 2019
